FAERS Safety Report 6407099-1 (Version None)
Quarter: 2009Q4

REPORT INFORMATION
  Report Type: 
  Country: None (occurrence: None)
  Receive Date: 20091014
  Receipt Date: 20090929
  Transmission Date: 20100525
  Serious: Yes (Hospitalization)
  Sender: FDA-Public Use
  Company Number: 20090301

PATIENT
  Age: 35 Year
  Sex: Female

DRUGS (6)
  1. VENOFER [Suspect]
     Indication: ANAEMIA OF PREGNANCY
     Dosage: 300 MG INTRAVENOUS
     Route: 042
     Dates: start: 20090704, end: 20090704
  2. AUGMENTIN [Concomitant]
  3. LOVENOX [Concomitant]
  4. UNKNOWN INTRAVENOUS FLUID [Concomitant]
  5. OXYTOCIN [Concomitant]
  6. SULPROSTONE [Concomitant]

REACTIONS (6)
  - HAEMOGLOBIN DECREASED [None]
  - INFUSION SITE ERYTHEMA [None]
  - INFUSION SITE INDURATION [None]
  - INFUSION SITE PAIN [None]
  - INJECTION SITE THROMBOSIS [None]
  - THROMBOPHLEBITIS SUPERFICIAL [None]
